FAERS Safety Report 10948594 (Version 1)
Quarter: 2015Q1

REPORT INFORMATION
  Report Type: Spontaneous
  Country: JP (occurrence: JP)
  Receive Date: 20150324
  Receipt Date: 20150324
  Transmission Date: 20150721
  Serious: Yes (Hospitalization)
  Sender: FDA-Public Use
  Company Number: JP-ACTELION-A-CH2015-112948

PATIENT
  Age: 84 Year
  Sex: Female
  Weight: 41 kg

DRUGS (7)
  1. ADCIRCA [Suspect]
     Active Substance: TADALAFIL
     Indication: PULMONARY HYPERTENSION
     Dosage: 20 MG, QD
     Route: 048
     Dates: start: 20141107, end: 20141205
  2. ADCIRCA [Suspect]
     Active Substance: TADALAFIL
     Dosage: 40 MG, QD
     Route: 048
     Dates: start: 20141205, end: 20150119
  3. BERAPROST SODIUM [Concomitant]
     Active Substance: BERAPROST SODIUM
  4. TRACLEER [Suspect]
     Active Substance: BOSENTAN\BOSENTAN MONOHYDRATE
     Indication: PULMONARY HYPERTENSION
     Dosage: 62.5 MG, BID
     Route: 048
     Dates: start: 20130906, end: 20150109
  5. WARFARIN [Concomitant]
     Active Substance: WARFARIN
  6. OXYGEN. [Concomitant]
     Active Substance: OXYGEN
  7. PREDNISOLONE. [Concomitant]
     Active Substance: PREDNISOLONE

REACTIONS (4)
  - Systemic lupus erythematosus [Unknown]
  - Drug interaction [Recovered/Resolved]
  - Oedema peripheral [Recovering/Resolving]
  - Pyrexia [Unknown]

NARRATIVE: CASE EVENT DATE: 20140627
